FAERS Safety Report 5940437-2 (Version None)
Quarter: 2008Q4

REPORT INFORMATION
  Report Type: 
  Country: None (occurrence: None)
  Receive Date: 20081030
  Receipt Date: 20081016
  Transmission Date: 20090506
  Serious: Yes (Other)
  Sender: FDA-Public Use
  Company Number: 2008AL011379

PATIENT
  Sex: Male

DRUGS (3)
  1. CARVEDILOL TABLETS, 25 MG (AELLC) (CARVEDILOL TABLETS, 25 MG (AELLC)) [Suspect]
  2. BISOPROLOL FUMARATE [Concomitant]
  3. ACETYLSALICYLIC ACID SRT [Concomitant]

REACTIONS (4)
  - ERYTHEMA [None]
  - EYE PRURITUS [None]
  - EYE SWELLING [None]
  - PRURITUS [None]
